FAERS Safety Report 20936573 (Version 2)
Quarter: 2022Q3

REPORT INFORMATION
  Report Type: Report from Study
  Country: JP (occurrence: JP)
  Receive Date: 20220609
  Receipt Date: 20220720
  Transmission Date: 20221026
  Serious: Yes (Hospitalization, Other)
  Sender: FDA-Public Use
  Company Number: JP-ALNYLAM PHARMACEUTICALS, INC.-ALN-2021-001461

PATIENT

DRUGS (31)
  1. ONPATTRO [Suspect]
     Active Substance: PATISIRAN SODIUM
     Indication: Hereditary neuropathic amyloidosis
     Dosage: 17.6 MILLIGRAM, Q3W
     Route: 041
     Dates: start: 20191120, end: 20210512
  2. ONPATTRO [Suspect]
     Active Substance: PATISIRAN SODIUM
     Dosage: UNK, Q3W
     Route: 041
  3. GASTER [Concomitant]
     Active Substance: FAMOTIDINE
     Indication: Prophylaxis
     Dosage: 20 MILLIGRAM, SINGLE
     Route: 065
     Dates: start: 20191120
  4. DEXAMETHASONE SODIUM PHOSPHATE [Concomitant]
     Active Substance: DEXAMETHASONE SODIUM PHOSPHATE
     Indication: Prophylaxis
     Dosage: 10 MILLIGRAM, SINGLE
     Route: 065
     Dates: start: 20191120
  5. POLARAMINE [Concomitant]
     Active Substance: DEXCHLORPHENIRAMINE MALEATE
     Indication: Prophylaxis
     Dosage: 5 MILLIGRAM, SINGLE
     Route: 065
     Dates: start: 20191120
  6. DEXAMETHASONE [Concomitant]
     Active Substance: DEXAMETHASONE
     Indication: Prophylaxis
     Dosage: 10 MILLIGRAM
     Route: 041
     Dates: start: 20191023, end: 20210512
  7. FAMOTIDINE [Concomitant]
     Active Substance: FAMOTIDINE
     Indication: Prophylaxis
     Dosage: 20 MILLIGRAM
     Route: 041
     Dates: start: 20191023, end: 20210512
  8. CHLORPHENIRAMINE MALEATE [Concomitant]
     Active Substance: CHLORPHENIRAMINE MALEATE
     Indication: Prophylaxis
     Dosage: 5 MILLIGRAM
     Route: 041
     Dates: start: 20191023, end: 20210512
  9. ACETAMINOPHEN [Concomitant]
     Active Substance: ACETAMINOPHEN
     Indication: Prophylaxis
     Dosage: 500 MILLIGRAM
     Route: 048
     Dates: start: 20191023, end: 20210512
  10. VITAMINS [Concomitant]
     Active Substance: VITAMINS
     Indication: Prophylaxis
     Dosage: 0.5 GRAM, BID
     Route: 048
  11. TEGRETOL [Concomitant]
     Active Substance: CARBAMAZEPINE
     Indication: Hypoaesthesia
     Dosage: 200 MILLIGRAM, BID
     Route: 048
  12. TEGRETOL [Concomitant]
     Active Substance: CARBAMAZEPINE
     Indication: Hereditary neuropathic amyloidosis
  13. LYRICA [Concomitant]
     Active Substance: PREGABALIN
     Indication: Hypoaesthesia
     Dosage: 75 MILLIGRAM, QD
     Route: 048
  14. LYRICA [Concomitant]
     Active Substance: PREGABALIN
     Indication: Hereditary neuropathic amyloidosis
  15. LOXOPROFEN SODIUM [Concomitant]
     Active Substance: LOXOPROFEN SODIUM
     Indication: Hypoaesthesia
     Dosage: 60 MILLIGRAM, TID
     Route: 048
     Dates: end: 20210620
  16. LOXOPROFEN SODIUM [Concomitant]
     Active Substance: LOXOPROFEN SODIUM
     Indication: Hereditary neuropathic amyloidosis
  17. TRAMCET [Concomitant]
     Active Substance: ACETAMINOPHEN\TRAMADOL
     Indication: Hypoaesthesia
     Dosage: 1 DOSAGE FORM, TID
     Route: 048
     Dates: end: 20210620
  18. TRAMCET [Concomitant]
     Active Substance: ACETAMINOPHEN\TRAMADOL
     Indication: Hereditary neuropathic amyloidosis
  19. MAGNESIUM OXIDE [Concomitant]
     Active Substance: MAGNESIUM OXIDE
     Indication: Constipation
     Dosage: 200 MILLIGRAM, TID
     Route: 048
     Dates: end: 20210620
  20. MAGNESIUM OXIDE [Concomitant]
     Active Substance: MAGNESIUM OXIDE
     Indication: Hereditary neuropathic amyloidosis
     Dosage: 500 MILLIGRAM, BID
     Route: 048
  21. KETOPROFEN [Concomitant]
     Active Substance: KETOPROFEN
     Indication: Hereditary neuropathic amyloidosis
     Dosage: 40 MILLIGRAM, QD
     Route: 061
  22. LANSOPRAZOLE [Concomitant]
     Active Substance: LANSOPRAZOLE
     Indication: Product used for unknown indication
     Dosage: 15 MILLIGRAM, QD
     Route: 048
  23. ATORVASTATIN [Concomitant]
     Active Substance: ATORVASTATIN
     Indication: Dyslipidaemia
     Dosage: 5 MILLIGRAM, QD
     Route: 065
  24. LIMAPROST [Concomitant]
     Active Substance: LIMAPROST
     Indication: Hereditary neuropathic amyloidosis
     Dosage: 5 MICROGRAM, TID
     Route: 065
  25. GABAPENTIN [Concomitant]
     Active Substance: GABAPENTIN
     Indication: Hereditary neuropathic amyloidosis
     Dosage: 1T-1T-2T, TID
     Route: 048
  26. ACETAMINOPHEN\TRAMADOL HYDROCHLORIDE [Concomitant]
     Active Substance: ACETAMINOPHEN\TRAMADOL HYDROCHLORIDE
     Indication: Hereditary neuropathic amyloidosis
     Dosage: 1 DOSAGE FORM, TID
     Route: 048
  27. CALCIUM POLYSTYRENE SULFONATE [Concomitant]
     Active Substance: CALCIUM POLYSTYRENE SULFONATE
     Indication: Hereditary neuropathic amyloidosis
     Dosage: 1 PACK, QD
     Route: 048
     Dates: start: 20191211
  28. LYRICA [Concomitant]
     Active Substance: PREGABALIN
     Indication: Hypoaesthesia
     Dosage: 25 MILLIGRAM, TID
     Route: 048
     Dates: end: 20210620
  29. LYRICA [Concomitant]
     Active Substance: PREGABALIN
     Indication: Hereditary neuropathic amyloidosis
  30. LOXOPROFEN [Concomitant]
     Active Substance: LOXOPROFEN
     Indication: Hereditary neuropathic amyloidosis
     Dosage: 60 MILLIGRAM, TID
     Route: 065
  31. VESICARE [Concomitant]
     Active Substance: SOLIFENACIN SUCCINATE
     Indication: Hereditary neuropathic amyloidosis
     Dosage: 5 MILLIGRAM, QD
     Route: 065

REACTIONS (7)
  - Subarachnoid haemorrhage [Recovering/Resolving]
  - Pneumonia aspiration [Recovering/Resolving]
  - Inappropriate schedule of product administration [Unknown]
  - Inappropriate schedule of product administration [Unknown]
  - Inappropriate schedule of product administration [Unknown]
  - Inappropriate schedule of product administration [Unknown]
  - Inappropriate schedule of product administration [Unknown]

NARRATIVE: CASE EVENT DATE: 20200115
